FAERS Safety Report 5935257-9 (Version None)
Quarter: 2008Q4

REPORT INFORMATION
  Report Type: 
  Country: None (occurrence: None)
  Receive Date: 20081028
  Receipt Date: 20081021
  Transmission Date: 20090506
  Serious: Yes (Death)
  Sender: FDA-Public Use
  Company Number: VISP-NO-0810S-0486

PATIENT
  Age: 75 Year
  Sex: Female

DRUGS (1)
  1. VISIPAQUE [Suspect]
     Indication: DRUG USE FOR UNKNOWN INDICATION
     Dosage: 100 ML, SINGLE DOSE, I.V.
     Route: 042
     Dates: start: 20081001, end: 20081001

REACTIONS (3)
  - ANAPHYLACTOID SHOCK [None]
  - CARDIAC ARREST [None]
  - RESPIRATORY ARREST [None]
